FAERS Safety Report 24832996 (Version 1)
Quarter: 2025Q1

REPORT INFORMATION
  Report Type: Spontaneous
  Country: US (occurrence: US)
  Receive Date: 20250111
  Receipt Date: 20250111
  Transmission Date: 20250409
  Serious: Yes (Other)
  Sender: ZYDUS PHARM
  Company Number: US-CADILA HEALTHCARE LIMITED-US-ZYDUS-117614

PATIENT

DRUGS (1)
  1. PHENTERMINE [Suspect]
     Active Substance: PHENTERMINE
     Indication: Weight decreased
     Route: 065

REACTIONS (1)
  - Colitis ischaemic [Recovered/Resolved]
